FAERS Safety Report 6011497-8 (Version None)
Quarter: 2008Q4

REPORT INFORMATION
  Report Type: 
  Country: None (occurrence: None)
  Receive Date: 20081218
  Receipt Date: 19860212
  Transmission Date: 20090506
  Serious: Yes (Death)
  Sender: FDA-Public Use
  Company Number: US-ROCHE-5753

PATIENT
  Sex: Male
  Weight: 81.4 kg

DRUGS (7)
  1. TICLOPIDINE HCL [Suspect]
     Indication: CEREBROVASCULAR ACCIDENT PROPHYLAXIS
     Route: 048
     Dates: start: 19840410, end: 19860212
  2. PLACEBO [Suspect]
     Indication: CEREBROVASCULAR ACCIDENT PROPHYLAXIS
     Dosage: BLINDED ASPIRIN - UNBLINDED TO PLACEBO.
     Route: 048
  3. ORINASE [Concomitant]
  4. PRONESTYL [Concomitant]
  5. LASIX [Concomitant]
  6. DIGOXIN [Concomitant]
  7. POTASSIUM CHLORIDE [Concomitant]

REACTIONS (1)
  - DEATH [None]
